FAERS Safety Report 10037583 (Version 1)
Quarter: 2014Q1

REPORT INFORMATION
  Report Type: Spontaneous
  Country: CH (occurrence: None)
  Receive Date: 20140324
  Receipt Date: 20140324
  Transmission Date: 20141002
  Serious: Yes (Other)
  Sender: FDA-Public Use
  Company Number: 20140130

PATIENT
  Sex: Female

DRUGS (1)
  1. VENOFER [Suspect]
     Dosage: FOR 4 DAYS
     Dates: start: 1999

REACTIONS (6)
  - Wrong technique in drug usage process [None]
  - Overdose [None]
  - Rash [None]
  - Erythema [None]
  - Chills [None]
  - Venous thrombosis [None]
